FAERS Safety Report 8433970-5 (Version None)
Quarter: 2012Q2

REPORT INFORMATION
  Report Type: 
  Country: None (occurrence: None)
  Receive Date: 20120613
  Receipt Date: 20120531
  Transmission Date: 20120825
  Serious: No
  Sender: FDA-Public Use
  Company Number: US-ASTRAZENECA-2012SE36945

PATIENT
  Age: 55 Year
  Sex: Female

DRUGS (2)
  1. TRICOR [Concomitant]
  2. CRESTOR [Suspect]
     Route: 048

REACTIONS (1)
  - HYPERTENSION [None]
